FAERS Safety Report 5400941-2 (Version None)
Quarter: 2007Q3

REPORT INFORMATION
  Report Type: 
  Country: None (occurrence: None)
  Receive Date: 20070730
  Receipt Date: 20070726
  Transmission Date: 20080115
  Serious: No
  Sender: FDA-Public Use
  Company Number: US-BAXTER-2007BH006652

PATIENT
  Age: 38 Year
  Sex: Male
  Weight: 116 kg

DRUGS (7)
  1. ENLON-PLUS [Suspect]
     Indication: ANAESTHESIA REVERSAL
     Dosage: DOSE UNIT:CUBIC CENTIMETER
     Route: 042
     Dates: start: 20070724, end: 20070724
  2. REMICADE [Concomitant]
     Indication: RHEUMATOID ARTHRITIS
     Route: 042
  3. HYDROCODONE BITARTRATE [Concomitant]
     Indication: PAIN
     Route: 048
  4. DILAUDID [Concomitant]
     Indication: PAIN
     Route: 048
  5. ONDANSETRON [Concomitant]
     Indication: DRUG USE FOR UNKNOWN INDICATION
     Dosage: DOSE UNIT:UNKNOWN
     Route: 042
     Dates: start: 20070724, end: 20070724
  6. FENTANYL [Concomitant]
     Indication: DRUG USE FOR UNKNOWN INDICATION
     Dosage: DOSE UNIT:UNKNOWN
     Route: 042
     Dates: start: 20070724, end: 20070724
  7. MIDAZOLAM [Concomitant]
     Indication: DRUG USE FOR UNKNOWN INDICATION
     Dosage: DOSE UNIT:UNKNOWN
     Route: 042
     Dates: start: 20070724, end: 20070724

REACTIONS (1)
  - CARDIAC ARREST [None]
